FAERS Safety Report 7209915-2 (Version None)
Quarter: 2011Q1

REPORT INFORMATION
  Report Type: 
  Country: None (occurrence: None)
  Receive Date: 20110105
  Receipt Date: 20101227
  Transmission Date: 20110831
  Serious: Yes (Hospitalization)
  Sender: FDA-Public Use
  Company Number: US-BIOGENIDEC-2010BI045177

PATIENT
  Age: 56 Year
  Sex: Female
  Weight: 63 kg

DRUGS (6)
  1. PROZAC [Concomitant]
     Indication: EMOTIONAL DISORDER
  2. LISINOPRIL [Concomitant]
     Indication: HYPERTENSION
  3. AVONEX [Suspect]
     Route: 030
     Dates: start: 20030801
  4. AVONEX [Suspect]
     Indication: MULTIPLE SCLEROSIS
     Route: 030
     Dates: start: 19960101, end: 20030801
  5. HYDROCHLOROTHIAZIDE [Concomitant]
     Indication: HYPERTENSION
  6. CYPREXA [Concomitant]
     Indication: DEPRESSION

REACTIONS (5)
  - RESPIRATORY TRACT CONGESTION [None]
  - HYPERTENSION [None]
  - MEDICATION ERROR [None]
  - EMOTIONAL DISORDER [None]
  - MEMORY IMPAIRMENT [None]
